FAERS Safety Report 26028159 (Version 1)
Quarter: 2025Q4

REPORT INFORMATION
  Report Type: Spontaneous
  Country: CN (occurrence: CN)
  Receive Date: 20251111
  Receipt Date: 20251111
  Transmission Date: 20260117
  Serious: Yes (Other)
  Sender: ABBVIE
  Company Number: CN-ABBVIE-6538756

PATIENT
  Age: 13 Year
  Sex: Female

DRUGS (9)
  1. VENETOCLAX [Suspect]
     Active Substance: VENETOCLAX
     Indication: Mastocytic leukaemia
     Route: 048
  2. VENETOCLAX [Suspect]
     Active Substance: VENETOCLAX
     Indication: Mastocytic leukaemia
     Dosage: USED IN COMBINATION WITH POSACONAZOLE FOR 16 DAYS ON DAYS 1 TO 16
     Route: 048
  3. AZACITIDINE [Concomitant]
     Active Substance: AZACITIDINE
     Indication: Mastocytic leukaemia
     Dosage: FOR 7 DAYS ON DAY 1 TO 7
     Route: 065
  4. CYTARABINE [Concomitant]
     Active Substance: CYTARABINE
     Indication: Mastocytic leukaemia
     Dosage: FOR 7 DAYS ON DAYS 1 TO 7
     Route: 065
  5. OMACETAXINE MEPESUCCINATE [Concomitant]
     Active Substance: OMACETAXINE MEPESUCCINATE
     Indication: Mastocytic leukaemia
     Dosage: FOR 7 DAYS ON DAYS 1 TO 7
     Route: 065
  6. AVAPRITINIB [Concomitant]
     Active Substance: AVAPRITINIB
     Indication: Mastocytic leukaemia
     Dosage: FOR 19 DAYS ON DAYS 9 TO 28
     Route: 048
  7. POSACONAZOLE [Concomitant]
     Active Substance: POSACONAZOLE
     Indication: Mastocytic leukaemia
     Dosage: FOR 16 DAYS ON DAYS 1 TO 16
     Route: 065
  8. DEXAMETHASONE [Concomitant]
     Active Substance: DEXAMETHASONE
     Indication: Mastocytic leukaemia
     Dosage: FOR 7 DAYS ON DAYS 1 TO 7
     Route: 065
  9. DEXAMETHASONE [Concomitant]
     Active Substance: DEXAMETHASONE
     Indication: Mastocytic leukaemia
     Dosage: FOR 21 DAYS ON DAYS 8 TO 28.
     Route: 065

REACTIONS (3)
  - Myelosuppression [Unknown]
  - Skin infection [Recovered/Resolved]
  - Off label use [Unknown]
